FAERS Safety Report 5644157-3 (Version None)
Quarter: 2008Q1

REPORT INFORMATION
  Report Type: 
  Country: None (occurrence: None)
  Receive Date: 20080227
  Receipt Date: 20080207
  Transmission Date: 20080703
  Serious: Yes (Death)
  Sender: FDA-Public Use
  Company Number: 163-20785-08021328

PATIENT
  Age: 70 Year
  Sex: Male

DRUGS (5)
  1. THALIDOMIDE [Suspect]
     Indication: NEUROENDOCRINE TUMOUR
     Dosage: 100-400 MG, DAILY, ORAL
     Route: 048
  2. TEMOZOLOMIDE [Suspect]
     Indication: NEUROENDOCRINE TUMOUR
  3. DECADRON [Concomitant]
  4. ADRIAMYCIN PFS [Concomitant]
  5. CORTICOSTEROIDS (CORTICOSTEROIDS) [Concomitant]

REACTIONS (2)
  - CYTOMEGALOVIRUS COLITIS [None]
  - MYELITIS TRANSVERSE [None]
